FAERS Safety Report 7372335-4 (Version None)
Quarter: 2011Q1

REPORT INFORMATION
  Report Type: 
  Country: None (occurrence: None)
  Receive Date: 20110324
  Receipt Date: 20110316
  Transmission Date: 20110831
  Serious: Yes (Disabling)
  Sender: FDA-Public Use
  Company Number: B0706793A

PATIENT
  Sex: Male
  Weight: 52 kg

DRUGS (4)
  1. VEPESID [Suspect]
     Indication: STEM CELL TRANSPLANT
     Dosage: 200MGM2 PER DAY
     Route: 042
     Dates: start: 20070903, end: 20070906
  2. CARBOPLATIN [Suspect]
     Indication: STEM CELL TRANSPLANT
     Dosage: 300MGM2 PER DAY
     Route: 042
     Dates: start: 20070903, end: 20070906
  3. BETAMETHASONE [Concomitant]
     Dosage: 4MG PER DAY
     Route: 042
     Dates: start: 20070905, end: 20070906
  4. ALKERAN [Suspect]
     Indication: STEM CELL TRANSPLANT
     Dosage: 70MGM2 PER DAY
     Route: 042
     Dates: start: 20070905, end: 20070906

REACTIONS (2)
  - GASTROINTESTINAL DISORDER [None]
  - MUCOUS MEMBRANE DISORDER [None]
